FAERS Safety Report 8410052-X (Version None)
Quarter: 2012Q2

REPORT INFORMATION
  Report Type: 
  Country: None (occurrence: None)
  Receive Date: 20120605
  Receipt Date: 20120530
  Transmission Date: 20120825
  Serious: Yes (Hospitalization)
  Sender: FDA-Public Use
  Company Number: US-BAYER-2012-004134

PATIENT
  Age: 45 Year
  Sex: Female
  Weight: 70.295 kg

DRUGS (8)
  1. OXYCODONE ACETAMINOPHEN/OXYCODONE HCL/OXYCONTIN [Concomitant]
     Indication: BACK PAIN
     Dosage: UNK
     Dates: start: 20070101, end: 20100101
  2. ASPIRIN [Concomitant]
     Dosage: UNK
     Dates: start: 20090101
  3. YAZ [Suspect]
     Indication: PREMENSTRUAL SYNDROME
  4. YAZ [Suspect]
  5. FEOSOL [Concomitant]
     Dosage: UNK
  6. PROMETHEGAN [Concomitant]
     Indication: HYPERSENSITIVITY
     Dosage: 25 MG, UNK
     Dates: start: 20070101, end: 20100101
  7. YAZ [Suspect]
     Indication: CONTRACEPTION
     Dosage: UNK
     Route: 048
     Dates: start: 20081202, end: 20090116
  8. CLOCETASOL PROPIONATE [Concomitant]
     Indication: DERMATOSIS
     Dosage: 0.05 %, UNK
     Dates: start: 20060101, end: 20110101

REACTIONS (10)
  - ANHEDONIA [None]
  - CHEST PAIN [None]
  - EMOTIONAL DISTRESS [None]
  - PULMONARY EMBOLISM [None]
  - MUSCLE SPASMS [None]
  - GENERAL PHYSICAL HEALTH DETERIORATION [None]
  - DYSPNOEA [None]
  - INJURY [None]
  - PAIN [None]
  - ANXIETY [None]
